FAERS Safety Report 23166640 (Version 5)
Quarter: 2024Q3

REPORT INFORMATION
  Report Type: Report from Study
  Country: CA (occurrence: CA)
  Receive Date: 20231109
  Receipt Date: 20240923
  Transmission Date: 20241017
  Serious: Yes (Other)
  Sender: SANDOZ
  Company Number: CA-002147023-NVSC2019CA023085

PATIENT
  Age: 51 Year
  Sex: Female

DRUGS (11)
  1. ERELZI [Suspect]
     Active Substance: ETANERCEPT-SZZS
     Dosage: 50MG WEEKLY;WEEKLY
     Route: 065
     Dates: start: 20240914
  2. ERELZI [Suspect]
     Active Substance: ETANERCEPT-SZZS
     Indication: Rheumatoid arthritis
     Dosage: 50 MG, QW (PRE-FILLED SYRINGE)
     Route: 058
     Dates: start: 20191025
  3. ERELZI [Suspect]
     Active Substance: ETANERCEPT-SZZS
     Dosage: 50 MG, QW (PRE-FILLED PEN)
     Route: 058
     Dates: start: 20240627
  4. METHOTREXATE [Suspect]
     Active Substance: METHOTREXATE
     Indication: Product used for unknown indication
     Dosage: UNK, (20), INJECTION USP, DOSAGE FORM: SOLUTION INTRA ARTERIAL
     Route: 065
     Dates: start: 2014
  5. ARAVA [Concomitant]
     Active Substance: LEFLUNOMIDE
     Indication: Product used for unknown indication
     Dosage: UNK
     Route: 065
     Dates: start: 2014
  6. BECLOMETHASONE [Concomitant]
     Active Substance: BECLOMETHASONE
     Indication: Product used for unknown indication
     Dosage: UNK
     Route: 065
  7. CALCIUM CARBONATE [Concomitant]
     Active Substance: CALCIUM CARBONATE
     Indication: Product used for unknown indication
     Dosage: 500 MG, QD
     Route: 048
  8. CYMBALTA [Concomitant]
     Active Substance: DULOXETINE HYDROCHLORIDE
     Indication: Product used for unknown indication
     Dosage: 2 DOSAGE FORM, QD
     Route: 048
  9. GOLD;HYOSCYAMUS NIGER;ONOPORDUM ACANTHIUM FLOWER;PRIMULA VERIS FLOWER [Concomitant]
     Indication: Product used for unknown indication
     Dosage: UNK
     Route: 065
     Dates: start: 2005, end: 2014
  10. ORENCIA [Concomitant]
     Active Substance: ABATACEPT
     Indication: Product used for unknown indication
     Dosage: UNK
     Route: 065
     Dates: start: 2014, end: 201901
  11. SULFASALAZINE [Concomitant]
     Active Substance: SULFASALAZINE
     Indication: Product used for unknown indication
     Dosage: UNK
     Route: 065
     Dates: start: 1999

REACTIONS (29)
  - Peripheral swelling [Unknown]
  - Erythema [Unknown]
  - Skin induration [Unknown]
  - Feeling hot [Unknown]
  - Tooth infection [Unknown]
  - Infection [Recovered/Resolved]
  - Pneumonia [Unknown]
  - Eating disorder [Unknown]
  - Productive cough [Recovering/Resolving]
  - Cold sweat [Recovered/Resolved]
  - Sputum discoloured [Not Recovered/Not Resolved]
  - Nasopharyngitis [Unknown]
  - Cough [Recovered/Resolved]
  - Oropharyngeal pain [Unknown]
  - Headache [Unknown]
  - Cold sweat [Unknown]
  - Cough [Unknown]
  - Drug intolerance [Unknown]
  - Pain [Unknown]
  - COVID-19 [Unknown]
  - Nasal congestion [Unknown]
  - Abscess oral [Unknown]
  - Bronchitis [Unknown]
  - Urinary tract infection [Unknown]
  - Injection site pain [Unknown]
  - Product dose omission issue [Unknown]
  - Injection site bruising [Unknown]
  - Influenza [Recovering/Resolving]
  - Dysphonia [Unknown]

NARRATIVE: CASE EVENT DATE: 20191001
